FAERS Safety Report 23758732 (Version 1)
Quarter: 2024Q2

REPORT INFORMATION
  Report Type: Other
  Country: US (occurrence: None)
  Receive Date: 20240418
  Receipt Date: 20240418
  Transmission Date: 20240716
  Serious: No
  Sender: FDA-Public Use
  Company Number: US-ROCHE-3485491

PATIENT
  Sex: Female

DRUGS (5)
  1. BEVACIZUMAB [Suspect]
     Active Substance: BEVACIZUMAB
     Indication: Uterine cancer
     Route: 065
  2. PACLITAXEL [Suspect]
     Active Substance: PACLITAXEL
     Indication: Uterine cancer
     Route: 065
  3. CARBOPLATIN [Suspect]
     Active Substance: CARBOPLATIN
     Indication: Uterine cancer
     Route: 065
  4. PEMBROLIZUMAB [Concomitant]
     Active Substance: PEMBROLIZUMAB
  5. LENVATINIB [Concomitant]
     Active Substance: LENVATINIB

REACTIONS (1)
  - Disease progression [Unknown]
